FAERS Safety Report 9081366 (Version 1)
Quarter: 2013Q1

REPORT INFORMATION
  Report Type: Spontaneous
  Country: ES (occurrence: ES)
  Receive Date: 20130130
  Receipt Date: 20130130
  Transmission Date: 20140127
  Serious: Yes (Hospitalization)
  Sender: FDA-Public Use
  Company Number: ES-ELI_LILLY_AND_COMPANY-ES201301006586

PATIENT
  Age: 71 None
  Sex: Female
  Weight: 57.5 kg

DRUGS (9)
  1. FORSTEO [Suspect]
     Indication: OSTEOPOROSIS
     Dosage: 20 UG, QD
     Route: 058
     Dates: start: 20120424, end: 20121228
  2. RAMIPRIL [Concomitant]
     Dosage: 5 MG, BID
     Route: 048
  3. CLOPIDOGREL [Concomitant]
     Dosage: 75 MG, QD
     Route: 048
  4. RANITIDINA [Concomitant]
     Dosage: 300 MG, QD
     Route: 048
  5. ORFIDAL [Concomitant]
     Indication: INSOMNIA
     Dosage: 1 MG, EACH EVENING
     Route: 048
  6. ATORVASTATINA [Concomitant]
     Dosage: 80 MG, QD
     Route: 048
  7. BISOPROLOL NORMON [Concomitant]
     Dosage: 2.5 MG, QD
     Route: 048
  8. ADIRO [Concomitant]
     Dosage: UNK, QD
     Route: 048
  9. CADUET [Concomitant]
     Indication: HYPERTENSION
     Dosage: UNK, QD
     Route: 048

REACTIONS (2)
  - Myocardial infarction [Recovering/Resolving]
  - Oedema peripheral [Recovered/Resolved]
